FAERS Safety Report 24341392 (Version 1)
Quarter: 2024Q3

REPORT INFORMATION
  Report Type: Spontaneous
  Country: US (occurrence: US)
  Receive Date: 20240920
  Receipt Date: 20240920
  Transmission Date: 20241017
  Serious: Yes (Other)
  Sender: STRIDES
  Company Number: US-STRIDES ARCOLAB LIMITED-2024SP011454

PATIENT
  Age: 66 Year
  Sex: Female

DRUGS (11)
  1. GABAPENTIN [Suspect]
     Active Substance: GABAPENTIN
     Indication: Small fibre neuropathy
     Dosage: 1200 MILLIGRAM, QD; MAXIMUM DOSE OF 1200 MG/D
     Route: 065
  2. CETIRIZINE [Suspect]
     Active Substance: CETIRIZINE HYDROCHLORIDE
     Indication: Small fibre neuropathy
     Dosage: UNK
     Route: 065
  3. LORATADINE [Suspect]
     Active Substance: LORATADINE
     Indication: Small fibre neuropathy
     Dosage: 10 MILLIGRAM, QD; MAXIMUM DOSE OF 10 MG/D
     Route: 065
  4. COLCHICINE [Suspect]
     Active Substance: COLCHICINE
     Indication: Pericarditis
     Dosage: UNK
     Route: 065
  5. FAMOTIDINE [Concomitant]
     Active Substance: FAMOTIDINE
     Indication: Small fibre neuropathy
     Dosage: 40 MILLIGRAM, QD
     Route: 065
  6. PROPRANOLOL [Concomitant]
     Active Substance: PROPRANOLOL HYDROCHLORIDE
     Indication: Small fibre neuropathy
     Dosage: 30 MILLIGRAM, QD
     Route: 065
  7. Immunoglobulin [Concomitant]
     Indication: Small fibre neuropathy
     Dosage: UNK
     Route: 058
  8. CROMOLYN [Concomitant]
     Active Substance: CROMOLYN
     Indication: Mast cell activation syndrome
     Dosage: 800 MILLIGRAM, QD
     Route: 048
  9. DIAMINE OXIDASE [Concomitant]
     Indication: Supplementation therapy
     Dosage: UNK
     Route: 065
  10. HISTAMINE [Concomitant]
     Active Substance: HISTAMINE
     Indication: Product used for unknown indication
     Dosage: UNK
     Route: 065
  11. ASPIRIN [Concomitant]
     Active Substance: ASPIRIN
     Indication: Pericarditis
     Dosage: UNK
     Route: 065

REACTIONS (2)
  - Therapy non-responder [Unknown]
  - Off label use [Unknown]
